FAERS Safety Report 9337794 (Version 1)
Quarter: 2013Q2

REPORT INFORMATION
  Report Type: Spontaneous
  Country: US (occurrence: US)
  Receive Date: 20130607
  Receipt Date: 20130607
  Transmission Date: 20140414
  Serious: No
  Sender: FDA-Public Use
  Company Number: US-ASTRAZENECA-2013SE40545

PATIENT
  Age: 82 Year
  Sex: Female

DRUGS (3)
  1. SEROQUEL [Suspect]
     Indication: AGITATION
     Route: 048
     Dates: start: 20130530
  2. UNSPECIFIED BLOOD PRESSURE MEDICATION [Concomitant]
     Indication: BLOOD PRESSURE ABNORMAL
  3. UNSPECIFIED CHOLESTROL MEDICATION [Concomitant]
     Indication: BLOOD CHOLESTEROL ABNORMAL

REACTIONS (5)
  - Agitation [Unknown]
  - Insomnia [Unknown]
  - Mental disorder [Unknown]
  - Aggression [Unknown]
  - Drug ineffective for unapproved indication [Unknown]
